FAERS Safety Report 24372660 (Version 4)
Quarter: 2025Q1

REPORT INFORMATION
  Report Type: Spontaneous
  Country: US (occurrence: US)
  Receive Date: 20240927
  Receipt Date: 20250213
  Transmission Date: 20250408
  Serious: No
  Sender: PFIZER
  Company Number: US-PFIZER INC-PV202300097670

PATIENT
  Age: 70 Year
  Sex: Female
  Weight: 92.9 kg

DRUGS (14)
  1. IBRANCE [Suspect]
     Active Substance: PALBOCICLIB
     Indication: Invasive lobular breast carcinoma
     Route: 048
     Dates: start: 20221027, end: 20240307
  2. IBRANCE [Suspect]
     Active Substance: PALBOCICLIB
     Indication: Breast cancer female
     Route: 048
     Dates: start: 20231010
  3. IBRANCE [Suspect]
     Active Substance: PALBOCICLIB
     Indication: Breast cancer metastatic
     Route: 048
     Dates: start: 20240209
  4. ELIQUIS [Suspect]
     Active Substance: APIXABAN
     Indication: Jugular vein thrombosis
     Dosage: 5 MG, 2X/DAY
     Route: 048
     Dates: start: 20220914
  5. ELIQUIS [Suspect]
     Active Substance: APIXABAN
     Indication: Subclavian vein thrombosis
  6. ELIQUIS [Suspect]
     Active Substance: APIXABAN
     Indication: Deep vein thrombosis
  7. FASLODEX [Concomitant]
     Active Substance: FULVESTRANT
     Dates: start: 20221027
  8. FASLODEX [Concomitant]
     Active Substance: FULVESTRANT
     Dates: start: 20231010
  9. FASLODEX [Concomitant]
     Active Substance: FULVESTRANT
     Dates: start: 20240209
  10. FASLODEX [Concomitant]
     Active Substance: FULVESTRANT
     Dates: start: 20240307
  11. FASLODEX [Concomitant]
     Active Substance: FULVESTRANT
     Dates: start: 20240823
  12. ZOMETA [Concomitant]
     Active Substance: ZOLEDRONIC ACID
  13. ZOMETA [Concomitant]
     Active Substance: ZOLEDRONIC ACID
     Dates: start: 20240307
  14. ZOMETA [Concomitant]
     Active Substance: ZOLEDRONIC ACID
     Dates: start: 20240823

REACTIONS (3)
  - Stomatitis [Unknown]
  - Fatigue [Unknown]
  - Dyspnoea [Unknown]

NARRATIVE: CASE EVENT DATE: 20240307
